FAERS Safety Report 6664239-7 (Version None)
Quarter: 2010Q2

REPORT INFORMATION
  Report Type: 
  Country: None (occurrence: None)
  Receive Date: 20100401
  Receipt Date: 20100322
  Transmission Date: 20101027
  Serious: Yes (Hospitalization)
  Sender: FDA-Public Use
  Company Number: PHHY2010FR02446

PATIENT
  Age: 72 Year
  Sex: Female

DRUGS (7)
  1. RASILEZ [Suspect]
     Dosage: 150 MG, DAILY
     Route: 048
     Dates: start: 20091118
  2. LASIX [Concomitant]
     Dosage: 20 MG DAILY
     Route: 065
  3. ALDACTONE [Concomitant]
     Dosage: 25 MG DAILY
     Route: 065
  4. IRBESARTAN [Concomitant]
     Dosage: 300 MG DAILY
     Route: 065
  5. SECTRAL [Concomitant]
  6. AMLOR [Concomitant]
  7. LOXEN [Concomitant]
     Dosage: UNK

REACTIONS (1)
  - RENAL FAILURE ACUTE [None]
